FAERS Safety Report 7833816-X (Version None)
Quarter: 2011Q4

REPORT INFORMATION
  Report Type: 
  Country: None (occurrence: None)
  Receive Date: 20111024
  Receipt Date: 20111014
  Transmission Date: 20120403
  Serious: Yes (Death, Hospitalization)
  Sender: FDA-Public Use
  Company Number: US-GLAXOSMITHKLINE-A0923025A

PATIENT
  Age: 50 Year
  Sex: Female
  Weight: 101.8 kg

DRUGS (2)
  1. AVANDAMET [Suspect]
     Indication: DIABETES MELLITUS
     Route: 048
     Dates: start: 20080101, end: 20100619
  2. AVANDIA [Suspect]
     Indication: DIABETES MELLITUS
     Dosage: 2MG PER DAY
     Route: 048
     Dates: start: 20060101, end: 20080101

REACTIONS (5)
  - COMA [None]
  - DEATH [None]
  - MYOCARDIAL INFARCTION [None]
  - ARRHYTHMIA [None]
  - MYOCARDIAL ISCHAEMIA [None]
